FAERS Safety Report 25148321 (Version 1)
Quarter: 2025Q2

REPORT INFORMATION
  Report Type: Spontaneous
  Country: GB (occurrence: GB)
  Receive Date: 20250402
  Receipt Date: 20250402
  Transmission Date: 20250717
  Serious: Yes (Other)
  Sender: AUROBINDO
  Company Number: GB-MHRA-MED-202503190941119390-YMWJC

PATIENT
  Age: 79 Year

DRUGS (1)
  1. DOXAZOSIN [Suspect]
     Active Substance: DOXAZOSIN MESYLATE
     Indication: Product used for unknown indication
     Route: 065
     Dates: start: 20250311

REACTIONS (5)
  - Swollen tongue [Recovered/Resolved]
  - Swelling face [Recovered/Resolved]
  - Dyspnoea [Recovered/Resolved]
  - Palpitations [Recovered/Resolved]
  - Pharyngeal swelling [Recovered/Resolved]

NARRATIVE: CASE EVENT DATE: 20250311
